FAERS Safety Report 15623512 (Version 10)
Quarter: 2019Q3

REPORT INFORMATION
  Report Type: Report from Study
  Country: US (occurrence: US)
  Receive Date: 20181115
  Receipt Date: 20190828
  Transmission Date: 20191004
  Serious: Yes (Hospitalization)
  Sender: FDA-Public Use
  Company Number: US-ACTELION-A-NJ2017-153845

PATIENT
  Age: 42 Year
  Sex: Female
  Weight: 120.64 kg

DRUGS (15)
  1. LEVOCETIRIZINE [Concomitant]
     Active Substance: LEVOCETIRIZINE
  2. POTASSIUM CHLORIDE. [Concomitant]
     Active Substance: POTASSIUM CHLORIDE
  3. OPSUMIT [Suspect]
     Active Substance: MACITENTAN
     Indication: PULMONARY ARTERIAL HYPERTENSION
     Dosage: 10 MG, QD
     Route: 048
     Dates: start: 20170429
  4. BUMETANIDE. [Concomitant]
     Active Substance: BUMETANIDE
  5. UPTRAVI [Suspect]
     Active Substance: SELEXIPAG
     Indication: PULMONARY ARTERIAL HYPERTENSION
     Dosage: 1600 MCG, BID
     Route: 048
     Dates: start: 20161214
  6. XELJANZ [Suspect]
     Active Substance: TOFACITINIB CITRATE
     Indication: PSORIATIC ARTHROPATHY
     Dosage: 11 MG, QD
     Route: 065
     Dates: start: 20180319
  7. DULERA [Concomitant]
     Active Substance: FORMOTEROL FUMARATE DIHYDRATE\MOMETASONE FUROATE
  8. HYDROXYCHLOROQUINE [Concomitant]
     Active Substance: HYDROXYCHLOROQUINE
  9. ONDASETRON [Concomitant]
     Active Substance: ONDANSETRON
  10. SILDENAFIL. [Suspect]
     Active Substance: SILDENAFIL
     Indication: PRODUCT USED FOR UNKNOWN INDICATION
     Route: 065
  11. LEFLUNOMIDE. [Concomitant]
     Active Substance: LEFLUNOMIDE
  12. DOXYCYCLINE. [Concomitant]
     Active Substance: DOXYCYCLINE
  13. ELIQUIS [Concomitant]
     Active Substance: APIXABAN
  14. PREDNISONE. [Concomitant]
     Active Substance: PREDNISONE
  15. PRILOSEC [Concomitant]
     Active Substance: OMEPRAZOLE MAGNESIUM

REACTIONS (31)
  - Dyspnoea exertional [Recovered/Resolved]
  - Iron deficiency anaemia [Not Recovered/Not Resolved]
  - Back pain [Unknown]
  - Bronchitis [Recovered/Resolved]
  - Headache [Unknown]
  - Arthritis [Recovered/Resolved]
  - Acute sinusitis [Unknown]
  - Abdominal distension [Not Recovered/Not Resolved]
  - Pain in extremity [Unknown]
  - Impaired quality of life [Not Recovered/Not Resolved]
  - Fluid overload [Recovered/Resolved]
  - Weight increased [Recovered/Resolved]
  - Haemoglobin decreased [Not Recovered/Not Resolved]
  - Haematocrit decreased [Not Recovered/Not Resolved]
  - Vomiting [Unknown]
  - Condition aggravated [Not Recovered/Not Resolved]
  - Malaise [Recovering/Resolving]
  - Upper respiratory tract infection [Recovered/Resolved]
  - Cardiac failure acute [Recovered/Resolved]
  - Genital disorder female [Unknown]
  - Menorrhagia [Not Recovered/Not Resolved]
  - Oedema peripheral [Recovered/Resolved]
  - Sleep apnoea syndrome [Unknown]
  - Cellulitis [Not Recovered/Not Resolved]
  - Dysphagia [Unknown]
  - Stress [Recovering/Resolving]
  - Chest discomfort [Unknown]
  - Nausea [Unknown]
  - Epistaxis [Unknown]
  - Pain [Not Recovered/Not Resolved]
  - Product dose omission [Not Recovered/Not Resolved]

NARRATIVE: CASE EVENT DATE: 20170502
